FAERS Safety Report 18661575 (Version 1)
Quarter: 2020Q4

REPORT INFORMATION
  Report Type: Spontaneous
  Country: TW (occurrence: TW)
  Receive Date: 20201224
  Receipt Date: 20201224
  Transmission Date: 20210114
  Serious: Yes (Other)
  Sender: FDA-Public Use
  Company Number: TW-ASTRAZENECA-2020SF67875

PATIENT
  Age: 48 Year
  Sex: Female

DRUGS (1)
  1. CRESTOR [Suspect]
     Active Substance: ROSUVASTATIN CALCIUM
     Dosage: 10.0MG AS REQUIRED
     Route: 048
     Dates: start: 2016, end: 202003

REACTIONS (3)
  - Muscular weakness [Unknown]
  - Low density lipoprotein increased [Unknown]
  - Muscular dystrophy [Recovering/Resolving]
